FAERS Safety Report 6840578-1 (Version None)
Quarter: 2010Q3

REPORT INFORMATION
  Report Type: 
  Country: None (occurrence: None)
  Receive Date: 20100714
  Receipt Date: 20100707
  Transmission Date: 20110219
  Serious: Yes (Hospitalization)
  Sender: FDA-Public Use
  Company Number: B0647798A

PATIENT
  Sex: Female

DRUGS (5)
  1. LAMICTAL [Suspect]
     Indication: EPILEPSY
     Dosage: 25MG PER DAY
     Route: 048
     Dates: start: 20100318, end: 20100412
  2. GABAPENTIN [Concomitant]
     Indication: EPILEPSY
     Dosage: 1800MG PER DAY
     Route: 048
     Dates: start: 20090501
  3. ROHYPNOL [Concomitant]
     Indication: INSOMNIA
     Dosage: 2MG PER DAY
     Route: 048
     Dates: start: 20090501
  4. MYSLEE [Concomitant]
     Indication: INSOMNIA
     Dosage: 10MG PER DAY
     Route: 048
     Dates: start: 20090501
  5. RESLIN [Concomitant]
     Indication: DEPRESSION
     Dosage: 100MG PER DAY
     Route: 048
     Dates: start: 20090501

REACTIONS (5)
  - DRUG ERUPTION [None]
  - EOSINOPHIL COUNT INCREASED [None]
  - OCULAR HYPERAEMIA [None]
  - OROPHARYNGEAL PAIN [None]
  - RASH PAPULAR [None]
